FAERS Safety Report 13185007 (Version 1)
Quarter: 2017Q1

REPORT INFORMATION
  Report Type: Spontaneous
  Country: US (occurrence: US)
  Receive Date: 20170203
  Receipt Date: 20170203
  Transmission Date: 20170428
  Serious: Yes (Other)
  Sender: FDA-Public Use
  Company Number: US-SA-2016SA234301

PATIENT
  Age: 69 Year
  Sex: Male

DRUGS (2)
  1. TOUJEO [Suspect]
     Active Substance: INSULIN GLARGINE
     Indication: TYPE 2 DIABETES MELLITUS
     Dosage: DOSE:30 UNIT(S)
     Route: 065
     Dates: start: 201608, end: 201612
  2. SOLOSTAR [Concomitant]
     Active Substance: DEVICE
     Dates: start: 201608

REACTIONS (5)
  - Weight decreased [Unknown]
  - Pancreatic carcinoma [Unknown]
  - Product use issue [Unknown]
  - Bile duct obstruction [Unknown]
  - Ocular icterus [Unknown]

NARRATIVE: CASE EVENT DATE: 201608
